FAERS Safety Report 5922129-9 (Version None)
Quarter: 2008Q4

REPORT INFORMATION
  Report Type: 
  Country: None (occurrence: None)
  Receive Date: 20081017
  Receipt Date: 20081006
  Transmission Date: 20090506
  Serious: Yes (Hospitalization)
  Sender: FDA-Public Use
  Company Number: CA-WATSON-2008-05948

PATIENT
  Age: 80 Year
  Sex: Female

DRUGS (3)
  1. PROPAFENONE (WATSON LABORATORIES) [Suspect]
     Indication: ATRIAL FIBRILLATION
     Dosage: 900 MG, DAILY
     Dates: start: 19960101
  2. CITALOPRAM HYDROBROMIDE (WATSON LABORATORIES) [Suspect]
     Indication: ANXIETY
     Dosage: 20 MG, DAILY
     Dates: start: 20060301
  3. CITALOPRAM HYDROBROMIDE (WATSON LABORATORIES) [Suspect]
     Dosage: 10 MG, DAILY
     Dates: start: 20060201, end: 20060301

REACTIONS (5)
  - CHEST DISCOMFORT [None]
  - DELIRIUM [None]
  - DIZZINESS [None]
  - FALL [None]
  - POTENTIATING DRUG INTERACTION [None]
